FAERS Safety Report 14185371 (Version 3)
Quarter: 2018Q1

REPORT INFORMATION
  Report Type: Report from Study
  Country: FI (occurrence: FI)
  Receive Date: 20171113
  Receipt Date: 20180105
  Transmission Date: 20180508
  Serious: Yes (Other)
  Sender: FDA-Public Use
  Company Number: FI-MYLANLABS-2017M1071545

PATIENT
  Age: 33 Year
  Sex: Female

DRUGS (4)
  1. LEPONEX [Suspect]
     Active Substance: CLOZAPINE
     Dosage: 300 MG, QD
     Dates: start: 2017
  2. DEPRAKINE [Concomitant]
     Active Substance: VALPROIC ACID
     Dosage: 1300 MG, QD
     Dates: start: 20171115
  3. LEPONEX [Suspect]
     Active Substance: CLOZAPINE
     Indication: SCHIZOAFFECTIVE DISORDER
     Dosage: 12.5 MG, QD
     Dates: start: 20171002, end: 2017
  4. DEPRAKINE [Concomitant]
     Active Substance: VALPROIC ACID
     Indication: PRODUCT USED FOR UNKNOWN INDICATION
     Dosage: 1800 MG, QD
     Dates: end: 20171114

REACTIONS (4)
  - Drug effect incomplete [Recovered/Resolved]
  - White blood cell count increased [Recovered/Resolved]
  - Eosinophilia [Recovered/Resolved]
  - Product use in unapproved indication [Not Recovered/Not Resolved]

NARRATIVE: CASE EVENT DATE: 2017
